FAERS Safety Report 9114821 (Version 4)
Quarter: 2013Q3

REPORT INFORMATION
  Report Type: Spontaneous
  Country: GB (occurrence: GB)
  Receive Date: 20130208
  Receipt Date: 20130726
  Transmission Date: 20140515
  Serious: Yes (Hospitalization, Disabling, Other)
  Sender: FDA-Public Use
  Company Number: GB-INCYTE CORPORATION-2013IN000193

PATIENT
  Age: 77 Year
  Sex: Male

DRUGS (14)
  1. JAKAVI [Suspect]
     Indication: MYELOFIBROSIS
     Dosage: 20 MG, BID
     Route: 065
     Dates: start: 20121015, end: 20130208
  2. JAKAVI [Suspect]
     Dosage: 20 MG, BID
     Dates: start: 20130225
  3. GABAPENTIN [Concomitant]
  4. CITALOPRAM [Concomitant]
  5. TAMSULOSIN [Concomitant]
  6. DUTASTERIDE [Concomitant]
  7. FOLIC ACID [Concomitant]
  8. NICORANDIL [Concomitant]
  9. SIMVASTATIN [Concomitant]
  10. DILTIAZEM [Concomitant]
  11. RAMIPRIL [Concomitant]
  12. ASPIRIN [Concomitant]
  13. SERETIDE [Concomitant]
  14. GLYCERYL TRINITRATE [Concomitant]

REACTIONS (5)
  - Circulatory collapse [Recovered/Resolved]
  - General physical health deterioration [Recovering/Resolving]
  - Lower respiratory tract infection [Recovered/Resolved]
  - Herpes zoster [Recovered/Resolved with Sequelae]
  - Pancytopenia [Recovered/Resolved]
